FAERS Safety Report 12379674 (Version 1)
Quarter: 2016Q2

REPORT INFORMATION
  Report Type: Spontaneous
  Country: US (occurrence: US)
  Receive Date: 20160518
  Receipt Date: 20160518
  Transmission Date: 20160815
  Serious: No
  Sender: FDA-Public Use
  Company Number: US-ACCORD-039894

PATIENT
  Age: 63 Year
  Sex: Female
  Weight: 88.45 kg

DRUGS (1)
  1. LISINOPRIL ACCORD [Suspect]
     Active Substance: LISINOPRIL
     Indication: HYPERTENSION
     Dosage: STRENGTH: 40 MG, TAKING 4 DOSES
     Route: 048
     Dates: start: 20160408, end: 20160410

REACTIONS (3)
  - Paraesthesia oral [Recovered/Resolved]
  - Hypoaesthesia oral [Recovered/Resolved]
  - Product substitution issue [Unknown]
